FAERS Safety Report 6289131-1 (Version None)
Quarter: 2009Q3

REPORT INFORMATION
  Report Type: 
  Country: None (occurrence: None)
  Receive Date: 20090729
  Receipt Date: 20090715
  Transmission Date: 20100115
  Serious: Yes (Hospitalization, Disabling)
  Sender: FDA-Public Use
  Company Number: JP-ASTRAZENECA-2007SE06778

PATIENT
  Sex: Male
  Weight: 70 kg

DRUGS (26)
  1. BLOPRESS [Suspect]
     Indication: HYPERTENSION
     Route: 048
     Dates: end: 20071111
  2. BLOPRESS [Suspect]
     Route: 048
     Dates: start: 20071114, end: 20071128
  3. BLOPRESS [Suspect]
     Route: 048
     Dates: start: 20071129, end: 20071129
  4. BLOPRESS [Suspect]
     Route: 048
     Dates: start: 20071204
  5. TAKEPRON OD [Concomitant]
     Indication: GASTRIC ULCER
     Route: 048
     Dates: start: 20071115, end: 20071129
  6. TAKEPRON OD [Concomitant]
     Route: 048
  7. ADALAT CC [Concomitant]
     Indication: HYPERTENSION
     Route: 048
     Dates: start: 20071129, end: 20071129
  8. ASPIRIN [Concomitant]
     Indication: EMBOLIC STROKE
     Route: 048
     Dates: start: 20071111, end: 20071128
  9. ASPIRIN [Concomitant]
     Route: 048
     Dates: start: 20071129, end: 20071129
  10. ASPIRIN [Concomitant]
     Route: 048
  11. ALLOPURINOL [Concomitant]
     Indication: GOUT
     Route: 048
     Dates: start: 20071111, end: 20071128
  12. ALLOPURINOL [Concomitant]
     Route: 048
     Dates: start: 20071129, end: 20071129
  13. ALLOPURINOL [Concomitant]
     Route: 048
  14. LIPOVAS [Concomitant]
     Indication: HYPERLIPIDAEMIA
     Route: 048
     Dates: start: 20071111, end: 20071129
  15. LIPOVAS [Concomitant]
     Route: 048
  16. COVERSYL [Concomitant]
     Route: 048
     Dates: start: 20071116, end: 20071129
  17. WARFARIN SODIUM [Concomitant]
     Indication: EMBOLIC STROKE
     Route: 048
     Dates: start: 20071114, end: 20071129
  18. WARFARIN SODIUM [Concomitant]
     Route: 048
  19. HEPARIN [Concomitant]
     Indication: EMBOLIC STROKE
     Route: 042
     Dates: start: 20071114, end: 20071124
  20. RADICUT [Concomitant]
     Indication: EMBOLIC STROKE
     Route: 042
     Dates: start: 20071111, end: 20071125
  21. ACE INHIBITOR NOS [Concomitant]
     Indication: HYPERTENSION
     Route: 048
     Dates: start: 20071116
  22. CALCIUM CHANNEL BLOCKERS [Concomitant]
     Indication: HYPERTENSION
     Route: 048
     Dates: start: 20071129
  23. URIEF(SILODOSIN) [Concomitant]
     Route: 048
     Dates: start: 20071211
  24. SELBEX [Concomitant]
     Route: 048
     Dates: start: 20071111, end: 20071113
  25. SELBEX [Concomitant]
     Route: 048
     Dates: start: 20080418, end: 20080420
  26. MAGLAX [Concomitant]
     Route: 048
     Dates: start: 20071214, end: 20080205

REACTIONS (5)
  - APRAXIA [None]
  - ATRIAL FIBRILLATION [None]
  - CEREBRAL INFARCTION [None]
  - MUSCULAR WEAKNESS [None]
  - OVERDOSE [None]
